FAERS Safety Report 8589077-X (Version None)
Quarter: 2012Q3

REPORT INFORMATION
  Report Type: 
  Country: None (occurrence: None)
  Receive Date: 20120813
  Receipt Date: 20120619
  Transmission Date: 20120928
  Serious: Yes (Hospitalization)
  Sender: FDA-Public Use
  Company Number: US-JNJFOC-20120802360

PATIENT
  Age: 54 Year
  Sex: Female
  Weight: 55.79 kg

DRUGS (13)
  1. ALEVE [Suspect]
     Indication: PAIN
     Route: 048
     Dates: start: 20120612, end: 20120613
  2. VITAMIN B-12 [Concomitant]
     Indication: GENERAL PHYSICAL CONDITION
     Dates: start: 19880101
  3. ASCORBIC ACID [Concomitant]
     Indication: GENERAL PHYSICAL CONDITION
     Dates: start: 19880101
  4. ZOFRAN [Suspect]
     Indication: NAUSEA
     Route: 030
     Dates: start: 20120617, end: 20120619
  5. PAMIDRONATE DISODIUM [Concomitant]
     Indication: METASTASES TO BONE
     Dates: start: 20110225
  6. VITAMINE E [Concomitant]
     Indication: GENERAL PHYSICAL CONDITION
     Dates: start: 19880101
  7. MOTRIN [Suspect]
     Indication: PAIN
     Route: 048
     Dates: start: 20111219, end: 20120611
  8. MS CONTIN [Suspect]
     Indication: PAIN
     Route: 048
     Dates: start: 20120612, end: 20120612
  9. MULTIPLE VITAMIN [Concomitant]
     Indication: GENERAL PHYSICAL CONDITION
     Dates: start: 19880101
  10. FOLIC ACID [Concomitant]
     Indication: CHEMOTHERAPY
     Dates: start: 20111201
  11. VITAMIN D [Concomitant]
     Indication: GENERAL PHYSICAL CONDITION
     Dates: start: 19880101
  12. DOXYCYCLINE HCL [Suspect]
     Indication: NON-SMALL CELL LUNG CANCER
     Route: 048
     Dates: start: 20120529, end: 20120620
  13. UNKNOWN MEDICATION [Suspect]
     Indication: NON-SMALL CELL LUNG CANCER
     Route: 048
     Dates: start: 20120529, end: 20120618

REACTIONS (5)
  - RENAL FAILURE ACUTE [None]
  - VOMITING [None]
  - DEHYDRATION [None]
  - NAUSEA [None]
  - DIARRHOEA [None]
